FAERS Safety Report 25388624 (Version 1)
Quarter: 2025Q2

REPORT INFORMATION
  Report Type: Report from Study
  Country: ES (occurrence: ES)
  Receive Date: 20250603
  Receipt Date: 20250603
  Transmission Date: 20250716
  Serious: Yes (Other)
  Sender: SAMSUNG BIOEPIS
  Company Number: ES-SAMSUNG BIOEPIS-SB-2025-19338

PATIENT
  Sex: Male

DRUGS (1)
  1. IMRALDI [Suspect]
     Active Substance: ADALIMUMAB
     Indication: Ankylosing spondylitis
     Route: 058

REACTIONS (1)
  - Urinary tract carcinoma in situ [Unknown]
